FAERS Safety Report 11008296 (Version 1)
Quarter: 2015Q2

REPORT INFORMATION
  Report Type: Spontaneous
  Country: JP (occurrence: JP)
  Receive Date: 20150410
  Receipt Date: 20150410
  Transmission Date: 20150821
  Serious: Yes (Death, Life-Threatening)
  Sender: FDA-Public Use
  Company Number: JP-PFIZER INC-2014310048

PATIENT
  Age: 73 Year
  Sex: Male
  Weight: 55 kg

DRUGS (11)
  1. HALFDIGOXIN [Concomitant]
     Active Substance: DIGOXIN
     Indication: ATRIAL FIBRILLATION
     Dosage: 0.125 MG, DAILY
     Route: 048
     Dates: end: 20140920
  2. ZOSYN [Suspect]
     Active Substance: PIPERACILLIN SODIUM\TAZOBACTAM SODIUM
     Indication: PNEUMONIA
     Dosage: 2.25 G, 2X/DAY
     Route: 042
     Dates: start: 20140919, end: 20140920
  3. HARNAL [Concomitant]
     Active Substance: TAMSULOSIN HYDROCHLORIDE
     Dosage: 0.2 MG, DAILY
     Route: 048
     Dates: start: 20140913, end: 20140920
  4. WARFARIN [Interacting]
     Active Substance: WARFARIN
     Indication: ATRIAL FIBRILLATION
     Dosage: 1.5 MG, DAILY
     Route: 048
     Dates: end: 20140920
  5. CRAVIT [Concomitant]
     Active Substance: LEVOFLOXACIN
     Indication: PNEUMONIA
     Dosage: 500 MG, DAILY
     Route: 048
     Dates: start: 20140913, end: 20140920
  6. REBAMIPIDE [Concomitant]
     Active Substance: REBAMIPIDE
     Indication: GASTRITIS
     Dosage: 300 MG, DAILY
     Route: 048
     Dates: end: 20140920
  7. LANSOPRAZOLE OD [Concomitant]
     Active Substance: LANSOPRAZOLE
     Indication: GASTRITIS
     Dosage: 30 MG, DAILY
     Route: 048
     Dates: end: 20140920
  8. MAINTATE [Concomitant]
     Active Substance: BISOPROLOL FUMARATE
     Indication: ATRIAL FIBRILLATION
     Dosage: 2.5 MG, DAILY
     Route: 048
     Dates: end: 20140920
  9. PLAVIX [Suspect]
     Active Substance: CLOPIDOGREL BISULFATE
     Indication: ATRIAL FIBRILLATION
     Dosage: 75 MG, DAILY
     Route: 048
     Dates: end: 20140920
  10. MUCODYNE [Concomitant]
     Active Substance: CARBOCYSTEINE
     Indication: PNEUMONIA
     Dosage: 1500 MG, DAILY
     Route: 048
     Dates: start: 20140913, end: 20140920
  11. CRESTOR [Concomitant]
     Active Substance: ROSUVASTATIN CALCIUM
     Indication: HYPERLIPIDAEMIA
     Dosage: 2.5 MG, DAILY
     Route: 048
     Dates: end: 20140920

REACTIONS (4)
  - Pneumonia [Fatal]
  - Drug interaction [Recovering/Resolving]
  - Myocardial infarction [Fatal]
  - Coagulopathy [Recovering/Resolving]

NARRATIVE: CASE EVENT DATE: 20140919
